FAERS Safety Report 5431617-3 (Version None)
Quarter: 2007Q3

REPORT INFORMATION
  Report Type: 
  Country: None (occurrence: None)
  Receive Date: 20070830
  Receipt Date: 20070820
  Transmission Date: 20080115
  Serious: Yes (Death, Other)
  Sender: FDA-Public Use
  Company Number: TR-ABBOTT-07P-161-0377762-00

PATIENT
  Age: 20 Month
  Sex: Male

DRUGS (1)
  1. VALPROATE SODIUM [Suspect]
     Indication: DRUG USE FOR UNKNOWN INDICATION

REACTIONS (6)
  - BRAIN OEDEMA [None]
  - HYPERNATRAEMIA [None]
  - HYPOCALCAEMIA [None]
  - LEUKOPENIA [None]
  - METABOLIC ACIDOSIS [None]
  - OVERDOSE [None]
